FAERS Safety Report 23342782 (Version 3)
Quarter: 2024Q1

REPORT INFORMATION
  Report Type: Spontaneous
  Country: BR (occurrence: BR)
  Receive Date: 20231227
  Receipt Date: 20240124
  Transmission Date: 20240409
  Serious: Yes (Death, Other)
  Sender: FDA-Public Use
  Company Number: BR-AMGEN-BRASP2023228542

PATIENT

DRUGS (1)
  1. CINACALCET HYDROCHLORIDE [Suspect]
     Active Substance: CINACALCET HYDROCHLORIDE
     Indication: Hyperparathyroidism secondary
     Dosage: UNK
     Route: 065

REACTIONS (9)
  - Sudden death [Fatal]
  - Myocardial infarction [Fatal]
  - Cardiac dysfunction [Unknown]
  - Cerebrovascular accident [Unknown]
  - Calciphylaxis [Unknown]
  - Coronary artery disease [Unknown]
  - Hyperphosphataemia [Unknown]
  - Blood alkaline phosphatase increased [Unknown]
  - Vascular calcification [Unknown]
